FAERS Safety Report 4819191-3 (Version None)
Quarter: 2005Q4

REPORT INFORMATION
  Report Type: 
  Country: None (occurrence: None)
  Receive Date: 20051103
  Receipt Date: 20051101
  Transmission Date: 20060501
  Serious: Yes (Hospitalization)
  Sender: FDA-Public Use
  Company Number: US-GLAXOSMITHKLINE-A0580483A

PATIENT
  Age: 18 Year
  Sex: Male

DRUGS (2)
  1. PAXIL [Suspect]
     Dosage: 20MG PER DAY
     Route: 048
  2. NO CONCURRENT MEDICATION [Concomitant]

REACTIONS (6)
  - AGGRESSION [None]
  - AGITATION [None]
  - ALCOHOLISM [None]
  - AMNESIA [None]
  - INJURY [None]
  - LOSS OF CONSCIOUSNESS [None]
